FAERS Safety Report 5086721-9 (Version None)
Quarter: 2006Q3

REPORT INFORMATION
  Report Type: 
  Country: None (occurrence: None)
  Receive Date: 20060823
  Receipt Date: 20060818
  Transmission Date: 20061208
  Serious: Yes (Hospitalization, Other)
  Sender: FDA-Public Use
  Company Number: PT-BRISTOL-MYERS SQUIBB COMPANY-13482435

PATIENT
  Age: 30 Year
  Sex: Female

DRUGS (3)
  1. DIDANOSINE [Suspect]
     Indication: HIV INFECTION
  2. STAVUDINE [Suspect]
     Indication: HIV INFECTION
  3. EFAVIRENZ [Suspect]
     Indication: HIV INFECTION

REACTIONS (10)
  - ABDOMINAL PAIN [None]
  - CONFUSIONAL STATE [None]
  - CYTOLYTIC HEPATITIS [None]
  - DEHYDRATION [None]
  - HEPATIC STEATOSIS [None]
  - LACTIC ACIDOSIS [None]
  - PANCREATITIS [None]
  - PNEUMONIA [None]
  - RENAL FAILURE [None]
  - SHOCK [None]
